FAERS Safety Report 14272463 (Version 1)
Quarter: 2017Q4

REPORT INFORMATION
  Report Type: Spontaneous
  Country: US (occurrence: US)
  Receive Date: 20171211
  Receipt Date: 20171211
  Transmission Date: 20180321
  Serious: Yes (Death, Other)
  Sender: FDA-Public Use
  Company Number: US-INTERCEPT-PMOCA2017000037

PATIENT

DRUGS (2)
  1. OCALIVA [Suspect]
     Active Substance: OBETICHOLIC ACID
     Indication: BILIARY CIRRHOSIS PRIMARY
     Dosage: 5 MG, QD
     Route: 048
     Dates: start: 201611, end: 201612
  2. OCALIVA [Suspect]
     Active Substance: OBETICHOLIC ACID
     Dosage: 5 MG, QW
     Route: 048

REACTIONS (6)
  - Drug prescribing error [Unknown]
  - Disease progression [Unknown]
  - Death [Fatal]
  - Abdominal pain upper [Recovered/Resolved]
  - Nausea [Recovered/Resolved]
  - Fatigue [Recovered/Resolved]

NARRATIVE: CASE EVENT DATE: 201711
